FAERS Safety Report 7235614-7 (Version None)
Quarter: 2011Q1

REPORT INFORMATION
  Report Type: 
  Country: None (occurrence: None)
  Receive Date: 20110110
  Receipt Date: 20110103
  Transmission Date: 20110831
  Serious: Yes (Other)
  Sender: FDA-Public Use
  Company Number: TRP_07474_2010

PATIENT
  Sex: Female

DRUGS (2)
  1. RIBASPHERE [Suspect]
     Indication: PRODUCT USED FOR UNKNOWN INDICATION
     Dosage: (DF)
  2. PEGASYS [Suspect]
     Indication: PRODUCT USED FOR UNKNOWN INDICATION
     Dosage: (DF)

REACTIONS (8)
  - DRY THROAT [None]
  - TONGUE DISCOLOURATION [None]
  - RASH GENERALISED [None]
  - HYPOAESTHESIA [None]
  - NASAL DRYNESS [None]
  - RHINALGIA [None]
  - GLOSSODYNIA [None]
  - BACK PAIN [None]
